FAERS Safety Report 13897174 (Version 1)
Quarter: 2017Q3

REPORT INFORMATION
  Report Type: Spontaneous
  Country: CN (occurrence: CN)
  Receive Date: 20170823
  Receipt Date: 20170823
  Transmission Date: 20171127
  Serious: Yes (Hospitalization, Other)
  Sender: FDA-Public Use
  Company Number: CN-MYLANLABS-2017M1051800

PATIENT

DRUGS (7)
  1. METHOTREXATE. [Suspect]
     Active Substance: METHOTREXATE
     Indication: ANGIOCENTRIC LYMPHOMA
     Dosage: 1.5G
     Route: 042
  2. METHOTREXATE. [Suspect]
     Active Substance: METHOTREXATE
     Dosage: 1.1G
     Route: 042
  3. PEGASPARGASE [Interacting]
     Active Substance: PEGASPARGASE
     Indication: ANGIOCENTRIC LYMPHOMA
     Route: 065
  4. METHOTREXATE. [Suspect]
     Active Substance: METHOTREXATE
     Dosage: 1.8G
     Route: 042
  5. GEMCITABINE [Interacting]
     Active Substance: GEMCITABINE\GEMCITABINE HYDROCHLORIDE
     Indication: ANGIOCENTRIC LYMPHOMA
     Route: 065
  6. CISPLATIN. [Interacting]
     Active Substance: CISPLATIN
     Indication: ANGIOCENTRIC LYMPHOMA
     Route: 065
  7. DEXAMETHASONE. [Interacting]
     Active Substance: DEXAMETHASONE
     Indication: ANGIOCENTRIC LYMPHOMA
     Route: 065

REACTIONS (6)
  - Diarrhoea [Unknown]
  - Drug interaction [Recovering/Resolving]
  - Bone marrow failure [Unknown]
  - Abdominal pain [Unknown]
  - Neurotoxicity [Recovering/Resolving]
  - Pancreatic enzymes increased [Unknown]
